FAERS Safety Report 12994718 (Version 2)
Quarter: 2016Q4

REPORT INFORMATION
  Report Type: Spontaneous
  Country: FR (occurrence: FR)
  Receive Date: 20161202
  Receipt Date: 20161216
  Transmission Date: 20170207
  Serious: Yes (Other)
  Sender: FDA-Public Use
  Company Number: FR-ALLERGAN-1678850US

PATIENT
  Age: 75 Year
  Sex: Female

DRUGS (3)
  1. TAMOXIFENE [Interacting]
     Active Substance: TAMOXIFEN
     Indication: BREAST CANCER
     Route: 048
  2. ESCITALOPRAM OXALATE - BP [Suspect]
     Active Substance: ESCITALOPRAM OXALATE
     Indication: PRODUCT USED FOR UNKNOWN INDICATION
     Route: 048
  3. FEMARA [Suspect]
     Active Substance: LETROZOLE
     Indication: BREAST CANCER
     Route: 065

REACTIONS (3)
  - Depression [Unknown]
  - Breast cancer [Unknown]
  - Contraindicated product administered [Unknown]
